FAERS Safety Report 19036181 (Version 1)
Quarter: 2021Q1

REPORT INFORMATION
  Report Type: Spontaneous
  Country: US (occurrence: US)
  Receive Date: 20210321
  Receipt Date: 20210321
  Transmission Date: 20210420
  Serious: No
  Sender: FDA-Public Use
  Company Number: US-GLAXOSMITHKLINE-USCH2021013894

PATIENT
  Age: 73 Year
  Sex: Female

DRUGS (1)
  1. VOLTAREN ARTHRITIS PAIN [Suspect]
     Active Substance: DICLOFENAC SODIUM
     Indication: ARTHRITIS
     Dates: start: 20210310, end: 20210316

REACTIONS (4)
  - Accidental exposure to product [Unknown]
  - Eye pain [Recovered/Resolved]
  - Ocular hyperaemia [Unknown]
  - Erythema of eyelid [Unknown]
